FAERS Safety Report 18611145 (Version 1)
Quarter: 2020Q4

REPORT INFORMATION
  Report Type: Report from Study
  Country: CA (occurrence: CA)
  Receive Date: 20201214
  Receipt Date: 20201214
  Transmission Date: 20210114
  Serious: Yes (Other)
  Sender: FDA-Public Use
  Company Number: CA-JNJFOC-20190905881

PATIENT
  Age: 37 Year
  Sex: Female
  Weight: 72 kg

DRUGS (1)
  1. REMICADE [Suspect]
     Active Substance: INFLIXIMAB
     Indication: CROHN^S DISEASE
     Dosage: STRENGTH = 300 MG
     Route: 042
     Dates: start: 20091029

REACTIONS (1)
  - Staphylococcal infection [Unknown]

NARRATIVE: CASE EVENT DATE: 20190903
